FAERS Safety Report 4948724-1 (Version None)
Quarter: 2006Q1

REPORT INFORMATION
  Report Type: 
  Country: None (occurrence: None)
  Receive Date: 20060313
  Receipt Date: 20060309
  Transmission Date: 20060701
  Serious: Yes (Hospitalization)
  Sender: FDA-Public Use
  Company Number: BEWYE459110MAR06

PATIENT
  Age: 54 Year
  Sex: Male

DRUGS (8)
  1. RAPAMUNE [Suspect]
     Indication: PROPHYLAXIS AGAINST TRANSPLANT REJECTION
     Dosage: 4 MG 1X PER 1 DAY ORAL
     Route: 048
     Dates: start: 20051203
  2. MEDROL [Concomitant]
  3. CELLCEPT [Concomitant]
  4. BACTRIM DS [Concomitant]
  5. BUMETANIDE [Concomitant]
  6. METOPROLOL SUCCINATE [Concomitant]
  7. BARNIDIPINE (BARNIDIPINE) [Concomitant]
  8. PRAVASTATIN [Concomitant]

REACTIONS (2)
  - COMPLICATIONS OF TRANSPLANTED KIDNEY [None]
  - RENAL IMPAIRMENT [None]
